FAERS Safety Report 18013495 (Version 1)
Quarter: 2020Q3

REPORT INFORMATION
  Report Type: Spontaneous
  Country: US (occurrence: US)
  Receive Date: 20200712
  Receipt Date: 20200712
  Transmission Date: 20201103
  Serious: Yes (Hospitalization, Other)
  Sender: FDA-Public Use
  Company Number: None

PATIENT
  Age: 23 Year
  Sex: Female
  Weight: 54.43 kg

DRUGS (1)
  1. NEXPLANON [Suspect]
     Active Substance: ETONOGESTREL
     Indication: CONTRACEPTION
     Dates: start: 20151031, end: 20181031

REACTIONS (10)
  - Weight decreased [None]
  - Feeling abnormal [None]
  - Job dissatisfaction [None]
  - General physical health deterioration [None]
  - Bipolar disorder [None]
  - Personal relationship issue [None]
  - Mental impairment [None]
  - Impaired quality of life [None]
  - Mood swings [None]
  - Suicidal ideation [None]

NARRATIVE: CASE EVENT DATE: 20151031
